FAERS Safety Report 7591487-4 (Version None)
Quarter: 2011Q3

REPORT INFORMATION
  Report Type: 
  Country: None (occurrence: None)
  Receive Date: 20110701
  Receipt Date: 20110701
  Transmission Date: 20111222
  Serious: Yes (Other)
  Sender: FDA-Public Use
  Company Number: None

PATIENT
  Age: 46 Year
  Sex: Female
  Weight: 79.3795 kg

DRUGS (2)
  1. EFFEXOR [Suspect]
     Indication: HOT FLUSH
     Dosage: 75MG 1 TIMER PER DAY PO
     Route: 048
     Dates: start: 20080401, end: 20100624
  2. EFFEXOR [Suspect]
     Indication: HYSTERECTOMY
     Dosage: 75MG 1 TIMER PER DAY PO
     Route: 048
     Dates: start: 20080401, end: 20100624

REACTIONS (6)
  - HEADACHE [None]
  - DIARRHOEA [None]
  - DIZZINESS [None]
  - WITHDRAWAL SYNDROME [None]
  - PARAESTHESIA [None]
  - NAUSEA [None]
